FAERS Safety Report 19151532 (Version 1)
Quarter: 2021Q2

REPORT INFORMATION
  Report Type: Spontaneous
  Country: JP (occurrence: JP)
  Receive Date: 20210419
  Receipt Date: 20210419
  Transmission Date: 20210717
  Serious: Yes (Other)
  Sender: FDA-Public Use
  Company Number: JP-SUN PHARMACEUTICAL INDUSTRIES LTD-2021RR-291825

PATIENT
  Age: 69 Year
  Sex: Female

DRUGS (4)
  1. TS?1 [Suspect]
     Active Substance: GIMERACIL\OTERACIL\TEGAFUR
     Dosage: 80 MILLIGRAM, DAILY
     Route: 065
  2. OXALIPLATIN. [Suspect]
     Active Substance: OXALIPLATIN
     Indication: GASTRIC CANCER
     Dosage: 130 MILLIGRAM/SQ. METER, ON DAY 1
     Route: 041
  3. TS?1 [Suspect]
     Active Substance: GIMERACIL\OTERACIL\TEGAFUR
     Indication: GASTRIC CANCER
     Dosage: 100 MILLIGRAM, DAILY, 3 WEEKS ADMINISTRATION, 2 WEEKS OFF
     Route: 065
  4. OXALIPLATIN. [Suspect]
     Active Substance: OXALIPLATIN
     Dosage: 100 MILLIGRAM/SQ. METER
     Route: 042

REACTIONS (1)
  - Myelosuppression [Unknown]
